FAERS Safety Report 8424292-7 (Version None)
Quarter: 2012Q2

REPORT INFORMATION
  Report Type: 
  Country: None (occurrence: None)
  Receive Date: 20120608
  Receipt Date: 20120308
  Transmission Date: 20120825
  Serious: No
  Sender: FDA-Public Use
  Company Number: US-ASTRAZENECA-2011SE75667

PATIENT
  Age: 63 Year
  Sex: Female
  Weight: 46.7 kg

DRUGS (9)
  1. PULMICORT FLEXHALER [Suspect]
     Indication: EMPHYSEMA
     Dosage: TWO PUFFS TWICE DAILY
     Route: 055
  2. SYMBICORT [Suspect]
     Indication: CHRONIC OBSTRUCTIVE PULMONARY DISEASE
     Dosage: 80/4.5,2 PUFFS, TWO TIMES A DAY
     Route: 055
  3. SPIRONOLACTONE [Concomitant]
  4. THYROID MEDIACTION [Concomitant]
  5. SPIRIVA [Concomitant]
  6. PULMICORT FLEXHALER [Suspect]
     Indication: CHRONIC OBSTRUCTIVE PULMONARY DISEASE
     Dosage: TWO PUFFS TWICE DAILY
     Route: 055
  7. SYMBICORT [Suspect]
     Indication: EMPHYSEMA
     Dosage: 80/4.5,2 PUFFS, TWO TIMES A DAY
     Route: 055
  8. SYNTHROID [Concomitant]
  9. WILBUTRINE [Concomitant]

REACTIONS (4)
  - DRUG INEFFECTIVE [None]
  - DRUG HYPERSENSITIVITY [None]
  - OFF LABEL USE [None]
  - TREMOR [None]
